FAERS Safety Report 9328615 (Version 1)
Quarter: 2013Q2

REPORT INFORMATION
  Report Type: Spontaneous
  Country: US (occurrence: US)
  Receive Date: 20130604
  Receipt Date: 20130604
  Transmission Date: 20140414
  Serious: No
  Sender: FDA-Public Use
  Company Number: US-SANOFI-AVENTIS-2012SA069966

PATIENT
  Age: 45 Year
  Sex: Female
  Weight: 112 kg

DRUGS (8)
  1. LANTUS SOLOSTAR [Suspect]
     Indication: TYPE 2 DIABETES MELLITUS
     Dosage: DOSE:10 UNIT(S)
     Route: 058
     Dates: start: 20120917, end: 20120919
  2. SOLOSTAR [Suspect]
     Indication: TYPE 2 DIABETES MELLITUS
     Dates: start: 20120917, end: 20120919
  3. LUNESTA [Concomitant]
     Indication: INSOMNIA
  4. VIIBRYD [Concomitant]
  5. METFORMIN HYDROCHLORIDE [Concomitant]
     Indication: TYPE 2 DIABETES MELLITUS
  6. VITAMIN D [Concomitant]
     Dosage: DOSE:2000 UNIT(S)
  7. LEVOTHYROXINE [Concomitant]
  8. CYMBALTA [Concomitant]

REACTIONS (5)
  - Eye irritation [Recovered/Resolved]
  - Pruritus [Recovered/Resolved]
  - Oral pruritus [Recovered/Resolved]
  - Orbital oedema [Recovered/Resolved]
  - Swelling face [Recovered/Resolved]
